FAERS Safety Report 20593348 (Version 2)
Quarter: 2022Q1

REPORT INFORMATION
  Report Type: Other
  Country: GB (occurrence: GB)
  Receive Date: 20220315
  Receipt Date: 20220325
  Transmission Date: 20220424
  Serious: Yes (Other)
  Sender: FDA-Public Use
  Company Number: GB-CELLTRION INC.-2022GB002828

PATIENT

DRUGS (8)
  1. INFLIXIMAB [Suspect]
     Active Substance: INFLIXIMAB
     Indication: Product used for unknown indication
     Dosage: UNK
     Route: 065
  2. INFLIXIMAB [Suspect]
     Active Substance: INFLIXIMAB
     Dosage: UNK
     Route: 065
  3. INFLIXIMAB [Suspect]
     Active Substance: INFLIXIMAB
     Dosage: PATIENT TOOK SECOND MOST RECENT INFUSION
     Dates: start: 20211222
  4. INFLIXIMAB [Suspect]
     Active Substance: INFLIXIMAB
     Dosage: PATIENT TOOK MOST RECENT INFUSION
     Dates: start: 20220217
  5. SODIUM CHLORIDE [Suspect]
     Active Substance: SODIUM CHLORIDE
     Indication: Medication dilution
     Dosage: PHARMACEUTICAL DOSE FORM: 230
     Route: 065
  6. SODIUM CHLORIDE [Suspect]
     Active Substance: SODIUM CHLORIDE
     Dosage: PHARMACEUTICAL DOSE FORM: 230
     Route: 065
  7. WATER [Suspect]
     Active Substance: WATER
     Indication: Medication dilution
     Dosage: PHARMACEUTICAL DOSE FORM: 236
     Route: 065
  8. WATER [Suspect]
     Active Substance: WATER
     Dosage: PHARMACEUTICAL DOSE FORM: 236
     Route: 065

REACTIONS (2)
  - COVID-19 [Recovered/Resolved]
  - Feeling abnormal [Unknown]

NARRATIVE: CASE EVENT DATE: 20220101
